FAERS Safety Report 9129891 (Version 2)
Quarter: 2013Q4

REPORT INFORMATION
  Report Type: Report from Study
  Country: DE (occurrence: DE)
  Receive Date: 20130125
  Receipt Date: 20131112
  Transmission Date: 20140711
  Serious: Yes (Other)
  Sender: FDA-Public Use
  Company Number: DE-VERTEX PHARMACEUTICALS INC.-2013-001184

PATIENT
  Age: 48 Year
  Sex: Male
  Weight: 51 kg

DRUGS (5)
  1. VX-950 (TELAPREVIR) [Suspect]
     Indication: HEPATITIS C
     Dosage: 2250 MG, QD
     Route: 048
     Dates: start: 20120123, end: 20120423
  2. COPEGUS [Suspect]
     Indication: HEPATITIS C
     Dosage: DOSAGE FORM: UNSPECIFIED
     Route: 048
     Dates: start: 20120816, end: 20130103
  3. PEGASYS [Suspect]
     Indication: HEPATITIS C
     Dosage: DOSAGE FORM: UNSPECIFIED
     Route: 048
     Dates: start: 20120123, end: 20121227
  4. ATRIPLA [Concomitant]
     Indication: HIV INFECTION
     Dosage: 1TBL
     Route: 048
     Dates: start: 20080424
  5. ATRIPLA [Concomitant]
     Indication: HEPATITIS B

REACTIONS (1)
  - Basal cell carcinoma [Recovered/Resolved]
